FAERS Safety Report 4931819-6 (Version None)
Quarter: 2006Q1

REPORT INFORMATION
  Report Type: 
  Country: None (occurrence: None)
  Receive Date: 20060303
  Receipt Date: 20060203
  Transmission Date: 20060701
  Serious: Yes (Death, Hospitalization, Other)
  Sender: FDA-Public Use
  Company Number: 2006PK00305

PATIENT
  Age: 60 Year
  Sex: Male

DRUGS (2)
  1. IRESSA [Suspect]
     Indication: GLIOBLASTOMA
     Route: 048
     Dates: start: 20051116, end: 20060208
  2. FORTECORTIN [Concomitant]

REACTIONS (10)
  - ABSCESS LIMB [None]
  - AGITATION [None]
  - FOLLICULITIS [None]
  - GENERAL PHYSICAL HEALTH DETERIORATION [None]
  - INFECTION [None]
  - KLEBSIELLA INFECTION [None]
  - MULTI-ORGAN FAILURE [None]
  - NECROTISING FASCIITIS [None]
  - POST PROCEDURAL HAEMATOMA [None]
  - WHITE BLOOD CELL COUNT DECREASED [None]
